FAERS Safety Report 8048676-4 (Version None)
Quarter: 2012Q1

REPORT INFORMATION
  Report Type: 
  Country: None (occurrence: None)
  Receive Date: 20120117
  Receipt Date: 20111207
  Transmission Date: 20120608
  Serious: No
  Sender: FDA-Public Use
  Company Number: US-MYLANLABS-2011S1024568

PATIENT
  Age: 68 Year
  Sex: Male

DRUGS (2)
  1. ALFUZOSIN HYDROCHLORIDE [Suspect]
     Indication: PROSTATE INFECTION
     Route: 048
     Dates: start: 20111028, end: 20111128
  2. ALFUZOSIN HYDROCHLORIDE [Suspect]
     Indication: NEPHROLITHIASIS
     Route: 048
     Dates: start: 20111028, end: 20111128

REACTIONS (4)
  - DIZZINESS [None]
  - FLATULENCE [None]
  - VISION BLURRED [None]
  - NASAL CONGESTION [None]
